FAERS Safety Report 5915990-5 (Version None)
Quarter: 2008Q4

REPORT INFORMATION
  Report Type: 
  Country: None (occurrence: None)
  Receive Date: 20081013
  Receipt Date: 20080930
  Transmission Date: 20090506
  Serious: Yes (Life-Threatening)
  Sender: FDA-Public Use
  Company Number: IT-JNJFOC-20081000804

PATIENT
  Age: 67 Year
  Sex: Male

DRUGS (2)
  1. REMICADE [Suspect]
     Indication: DIFFUSE VASCULITIS
     Route: 042
  2. PREDNISONE [Concomitant]

REACTIONS (7)
  - AGITATION [None]
  - BRADYCARDIA [None]
  - DYSPNOEA [None]
  - HYPOTENSION [None]
  - INFUSION RELATED REACTION [None]
  - LOSS OF CONSCIOUSNESS [None]
  - URTICARIA [None]
